FAERS Safety Report 10851088 (Version 1)
Quarter: 2015Q1

REPORT INFORMATION
  Report Type: Spontaneous
  Country: US (occurrence: US)
  Receive Date: 20150222
  Receipt Date: 20150222
  Transmission Date: 20150721
  Serious: No
  Sender: FDA-Public Use
  Company Number: US-ALLERGAN-1401672US

PATIENT
  Age: 65 Year
  Sex: Female

DRUGS (5)
  1. FENTANYL PATCHES [Concomitant]
     Active Substance: FENTANYL
     Indication: PAIN
  2. BOTOX [Suspect]
     Active Substance: ONABOTULINUMTOXINA
     Dosage: UNK UNK, SINGLE
     Dates: start: 20131223, end: 20131223
  3. BOTOX [Suspect]
     Active Substance: ONABOTULINUMTOXINA
     Indication: FIBROMYALGIA
     Dosage: UNK UNK, SINGLE
     Dates: start: 20131223, end: 20131223
  4. BOTOX [Suspect]
     Active Substance: ONABOTULINUMTOXINA
     Indication: DYSTONIA
     Dosage: 450 UNITS, SINGLE
     Dates: start: 20131223, end: 20131223
  5. BOTOX [Suspect]
     Active Substance: ONABOTULINUMTOXINA
     Dosage: UNK, SINGLE
     Dates: start: 201309, end: 201309

REACTIONS (8)
  - Toothache [Not Recovered/Not Resolved]
  - Joint range of motion decreased [Not Recovered/Not Resolved]
  - Off label use [Unknown]
  - Oral pain [Not Recovered/Not Resolved]
  - Facial paresis [Not Recovered/Not Resolved]
  - Staphylococcal infection [Not Recovered/Not Resolved]
  - Neck pain [Not Recovered/Not Resolved]
  - Secretion discharge [Not Recovered/Not Resolved]
